FAERS Safety Report 4307580-5 (Version None)
Quarter: 2004Q1

REPORT INFORMATION
  Report Type: 
  Country: None (occurrence: None)
  Receive Date: 20040225
  Receipt Date: 20031216
  Transmission Date: 20041129
  Serious: Yes (Other)
  Sender: FDA-Public Use
  Company Number: WAES 0312USA01813

PATIENT
  Age: 58 Year
  Sex: Male

DRUGS (3)
  1. ZOCOR [Suspect]
     Indication: HYPERLIPIDAEMIA
     Dosage: PO; 80 MG/DAILY/PO
     Route: 048
     Dates: end: 20031101
  2. ZOCOR [Suspect]
     Indication: HYPERLIPIDAEMIA
     Dosage: PO; 80 MG/DAILY/PO
     Route: 048
     Dates: start: 20010101
  3. PRINIVIL [Concomitant]

REACTIONS (1)
  - RHABDOMYOLYSIS [None]
